FAERS Safety Report 10376781 (Version 1)
Quarter: 2014Q1

REPORT INFORMATION
  Report Type: Spontaneous
  Country: US (occurrence: None)
  Receive Date: 20140306
  Receipt Date: 20140306
  Transmission Date: 20141002
  Serious: Yes (Other)
  Sender: FDA-Public Use
  Company Number: 163-21880-13040090

PATIENT
  Age: 72 Year
  Sex: Male

DRUGS (6)
  1. REVLIMID (LENALIDOMIDE) (10 MILLIGRAM, CAPSULES) [Suspect]
     Indication: PLASMA CELL MYELOMA
     Dosage: 10MG, 1 IN 1D, PO??DISCONTINUED
     Route: 048
     Dates: start: 20111214
  2. COUMADIN (WARFARIN SODIUM) [Concomitant]
  3. UROXATRAL (ALFUZOSIN HYDROCHLORIDE) [Concomitant]
  4. VELCADE (BORTEZOMIB) [Concomitant]
  5. CITRACAL (CALCIUM CITRATE) [Concomitant]
  6. BENADRYL (DIPHENHYDRAMINE HYDROCHLORIDE) [Concomitant]

REACTIONS (2)
  - Thrombosis [None]
  - Drug ineffective [None]
